FAERS Safety Report 11062458 (Version 2)
Quarter: 2015Q4

REPORT INFORMATION
  Report Type: Report from Study
  Country: DE (occurrence: DE)
  Receive Date: 20150424
  Receipt Date: 20151022
  Transmission Date: 20160304
  Serious: Yes (Death, Hospitalization)
  Sender: FDA-Public Use
  Company Number: DE-PFIZER INC-2014358800

PATIENT
  Age: 74 Year
  Sex: Male
  Weight: 54 kg

DRUGS (8)
  1. SAB SIMPLEX [Concomitant]
     Indication: FLATULENCE
     Dosage: UNK
     Route: 048
     Dates: start: 201412
  2. VOMEX [Concomitant]
     Active Substance: DIMENHYDRINATE
     Indication: PROPHYLAXIS OF NAUSEA AND VOMITING
     Dosage: UNK
     Route: 048
     Dates: start: 201412
  3. MONO-EMBOLEX [Concomitant]
     Active Substance: CERTOPARIN SODIUM
     Indication: THROMBOSIS PROPHYLAXIS
     Dosage: UNK
     Route: 058
     Dates: start: 20141205
  4. BLINDED PLACEBO [Suspect]
     Active Substance: INVESTIGATIONAL PRODUCT
     Indication: MESOTHELIOMA MALIGNANT
     Dosage: UNK, CYCLIC (EVERY 4 WEEKS)
     Route: 042
     Dates: start: 20141119
  5. BLINDED TREMELIMUMAB [Suspect]
     Active Substance: TREMELIMUMAB
     Indication: MESOTHELIOMA MALIGNANT
     Dosage: UNK, CYCLIC (EVERY 4 WEEKS)
     Route: 042
     Dates: start: 20141119
  6. SAROTEN [Concomitant]
     Active Substance: AMITRIPTYLINE
     Indication: DEPRESSION
     Dosage: UNK
     Route: 048
     Dates: start: 201411
  7. MORPHINE SULFATE. [Suspect]
     Active Substance: MORPHINE SULFATE
     Indication: PAIN
     Dosage: UNK
     Route: 048
     Dates: start: 201411
  8. MACROGOL [Concomitant]
     Active Substance: POLYETHYLENE GLYCOLS
     Indication: CONSTIPATION
     Dosage: UNK
     Route: 048
     Dates: start: 201411

REACTIONS (1)
  - Vomiting [Recovered/Resolved with Sequelae]

NARRATIVE: CASE EVENT DATE: 20141205
